FAERS Safety Report 20719373 (Version 1)
Quarter: 2022Q2

REPORT INFORMATION
  Report Type: Spontaneous
  Country: US (occurrence: US)
  Receive Date: 20220418
  Receipt Date: 20220418
  Transmission Date: 20220720
  Serious: Yes (Other)
  Sender: FDA-Public Use
  Company Number: US-GLAXOSMITHKLINE-US2022064852

PATIENT

DRUGS (1)
  1. FLONASE ALLERGY RELIEF [Suspect]
     Active Substance: FLUTICASONE PROPIONATE
     Indication: Product used for unknown indication
     Dosage: UNK

REACTIONS (7)
  - Suicidal ideation [Unknown]
  - Palpitations [Unknown]
  - Dizziness [Unknown]
  - Electric shock sensation [Unknown]
  - Anxiety [Unknown]
  - Depression [Unknown]
  - Disturbance in attention [Unknown]
